FAERS Safety Report 18028909 (Version 3)
Quarter: 2020Q4

REPORT INFORMATION
  Report Type: Report from Study
  Country: US (occurrence: US)
  Receive Date: 20200715
  Receipt Date: 20201023
  Transmission Date: 20210113
  Serious: Yes (Death, Hospitalization)
  Sender: FDA-Public Use
  Company Number: US-EXELIXIS-CABO-20031227

PATIENT
  Age: 79 Year
  Sex: Male

DRUGS (2)
  1. CABOMETYX [Suspect]
     Active Substance: CABOZANTINIB S-MALATE
     Indication: PROSTATE CANCER
     Dosage: 40 MG, QD
     Dates: start: 202006, end: 20200621
  2. PEMBROLIZUMAB. [Concomitant]
     Active Substance: PEMBROLIZUMAB

REACTIONS (3)
  - Off label use [Unknown]
  - Malignant neoplasm progression [Fatal]
  - Renal failure [Unknown]

NARRATIVE: CASE EVENT DATE: 20200719
